FAERS Safety Report 7236397-7 (Version None)
Quarter: 2010Q4

REPORT INFORMATION
  Report Type: 
  Country: None (occurrence: None)
  Receive Date: 20101229
  Receipt Date: 20101216
  Transmission Date: 20110411
  Serious: No
  Sender: FDA-Public Use
  Company Number: CA-145091

PATIENT
  Sex: Female
  Weight: 53.1 kg

DRUGS (2)
  1. WINRHO [Suspect]
     Indication: IDIOPATHIC THROMBOCYTOPENIC PURPURA
     Dosage: (37.66 ?G/KG INTRAVENOUS), (1000 ?G INTRAVENOUS)
     Route: 042
     Dates: start: 20100910, end: 20100910
  2. WINRHO [Suspect]

REACTIONS (8)
  - BACK PAIN [None]
  - BLOOD BILIRUBIN INCREASED [None]
  - BLOOD PRESSURE DECREASED [None]
  - CHILLS [None]
  - HAEMOGLOBIN DECREASED [None]
  - HAEMOLYTIC TRANSFUSION REACTION [None]
  - HEART RATE DECREASED [None]
  - MALAISE [None]
